FAERS Safety Report 9170586 (Version 1)
Quarter: 2013Q1

REPORT INFORMATION
  Report Type: Spontaneous
  Country: US (occurrence: None)
  Receive Date: 20130315
  Receipt Date: 20130315
  Transmission Date: 20140127
  Serious: No
  Sender: FDA-Public Use
  Company Number: None

PATIENT
  Age: 57 Year
  Sex: Female
  Weight: 73.03 kg

DRUGS (1)
  1. HUMIRA [Suspect]
     Indication: PSORIATIC ARTHROPATHY
     Dosage: EVERY 2 WEEK
     Route: 058
     Dates: start: 20080301, end: 20130101

REACTIONS (3)
  - Rash pruritic [None]
  - Psoriasis [None]
  - No therapeutic response [None]
